FAERS Safety Report 8221766-9 (Version None)
Quarter: 2012Q1

REPORT INFORMATION
  Report Type: 
  Country: None (occurrence: None)
  Receive Date: 20120320
  Receipt Date: 20120320
  Transmission Date: 20120608
  Serious: Yes (Hospitalization)
  Sender: FDA-Public Use
  Company Number: None

PATIENT
  Age: 53 Year
  Sex: Female
  Weight: 123 kg

DRUGS (1)
  1. PLASMA PROTEIN FRACTION (HUMAN) [Suspect]
     Indication: PANCYTOPENIA
     Dosage: 1 UNIT
     Route: 042
     Dates: start: 20120125, end: 20120125

REACTIONS (3)
  - HLA MARKER STUDY POSITIVE [None]
  - ANTIBODY TEST POSITIVE [None]
  - TRANSFUSION-RELATED ACUTE LUNG INJURY [None]
